FAERS Safety Report 8905692 (Version 1)
Quarter: 2012Q4

REPORT INFORMATION
  Report Type: 
  Country: DK (occurrence: US)
  Receive Date: 20121113
  Receipt Date: 20121113
  Transmission Date: 20130627
  Serious: Yes (Hospitalization)
  Sender: FDA-Public Use
  Company Number: US-FRI-1000040353

PATIENT
  Age: 61 Year
  Sex: Male

DRUGS (5)
  1. LEXAPRO [Suspect]
     Indication: MAJOR DEPRESSION
     Dosage: 10 mg
     Route: 048
     Dates: start: 20101122
  2. LUAF41156 [Suspect]
     Indication: MAJOR DEPRESSION
     Dosage: 0.5 mg
     Route: 048
     Dates: start: 20101122
  3. CLARITIN [Concomitant]
     Dates: start: 2007
  4. FLONASE [Concomitant]
     Dates: start: 20101017
  5. LISINOPRIL [Concomitant]
     Dates: start: 20110706

REACTIONS (1)
  - VIth nerve paralysis [Recovered/Resolved with Sequelae]
